FAERS Safety Report 24696265 (Version 1)
Quarter: 2024Q4

REPORT INFORMATION
  Report Type: Other
  Country: US (occurrence: US)
  Receive Date: 20241204
  Receipt Date: 20241204
  Transmission Date: 20250115
  Serious: Yes (Hospitalization, Other)
  Sender: ORBION PHARMACEUTICALS PRIVATE LIMITED
  Company Number: US-OrBion Pharmaceuticals Private Limited-2166467

PATIENT
  Age: 53 Year
  Sex: Male

DRUGS (2)
  1. LEVETIRACETAM [Suspect]
     Active Substance: LEVETIRACETAM
     Indication: Epilepsy
  2. OMEPRAZOLE [Concomitant]
     Active Substance: OMEPRAZOLE

REACTIONS (1)
  - Tubulointerstitial nephritis [Unknown]
